FAERS Safety Report 11002436 (Version 1)
Quarter: 2015Q2

REPORT INFORMATION
  Report Type: Spontaneous
  Country: US (occurrence: US)
  Receive Date: 20150408
  Receipt Date: 20150408
  Transmission Date: 20150821
  Serious: No
  Sender: FDA-Public Use
  Company Number: US-GLAXOSMITHKLINE-US2015044955

PATIENT
  Age: 72 Year
  Sex: Female

DRUGS (1)
  1. FLOVENT DISKUS [Suspect]
     Active Substance: FLUTICASONE PROPIONATE
     Indication: BRONCHITIS CHRONIC
     Dosage: 3 PUFF(S), BID
     Route: 055

REACTIONS (3)
  - Dysphonia [Recovering/Resolving]
  - Prescribed overdose [Recovered/Resolved]
  - Nausea [Recovered/Resolved]
